FAERS Safety Report 13919487 (Version 2)
Quarter: 2018Q1

REPORT INFORMATION
  Report Type: Spontaneous
  Country: US (occurrence: US)
  Receive Date: 20170830
  Receipt Date: 20180106
  Transmission Date: 20180508
  Serious: Yes (Death, Life-Threatening, Hospitalization, Other)
  Sender: FDA-Public Use
  Company Number: US-AUROBINDO-AUR-APL-2017-39621

PATIENT
  Age: 60 Year
  Sex: Male
  Weight: 130.6 kg

DRUGS (22)
  1. METHYLPREDNISOLONE. [Suspect]
     Active Substance: METHYLPREDNISOLONE
     Route: 042
  2. PREDNISONE. [Suspect]
     Active Substance: PREDNISONE
     Indication: IMMUNOSUPPRESSANT DRUG THERAPY
     Dosage: 100 MG, ONCE A DAY
     Route: 048
  3. CYCLOPHOSPHAMIDE. [Suspect]
     Active Substance: CYCLOPHOSPHAMIDE
     Route: 048
  4. WARFARIN [Concomitant]
     Active Substance: WARFARIN
     Dosage: ()
     Route: 065
  5. ATOVAQUONE. [Concomitant]
     Active Substance: ATOVAQUONE
  6. PREDNISONE. [Suspect]
     Active Substance: PREDNISONE
     Dosage: 80 MG, UNK
     Route: 048
  7. ABACIN [Concomitant]
     Active Substance: SULFAMETHOXAZOLE\TRIMETHOPRIM
     Indication: LOCALISED INFECTION
     Route: 048
  8. SULFAMETHOXAZOLE, TRIMETHOPRIM [Suspect]
     Active Substance: SULFAMETHOXAZOLE\TRIMETHOPRIM
     Indication: LOCALISED INFECTION
     Dosage: ()
     Route: 048
  9. PREDNISONE. [Suspect]
     Active Substance: PREDNISONE
     Route: 048
  10. PREDNISONE. [Suspect]
     Active Substance: PREDNISONE
     Route: 048
  11. METHYLPREDNISOLONE. [Suspect]
     Active Substance: METHYLPREDNISOLONE
     Indication: IMMUNOSUPPRESSANT DRUG THERAPY
     Dosage: 1000 MG, UNK
     Route: 042
  12. PREDNISONE. [Suspect]
     Active Substance: PREDNISONE
     Route: 048
  13. WARFARIN [Concomitant]
     Active Substance: WARFARIN
     Indication: ATRIAL FIBRILLATION
     Dosage: ()
     Route: 065
  14. PREDNISONE. [Suspect]
     Active Substance: PREDNISONE
     Route: 048
  15. CYCLOPHOSPHAMIDE. [Suspect]
     Active Substance: CYCLOPHOSPHAMIDE
  16. ATOVAQUONE. [Concomitant]
     Active Substance: ATOVAQUONE
     Indication: INFECTION PROPHYLAXIS
     Route: 065
  17. METHYLPREDNISOLONE. [Suspect]
     Active Substance: METHYLPREDNISOLONE
     Route: 042
  18. CYCLOPHOSPHAMIDE. [Suspect]
     Active Substance: CYCLOPHOSPHAMIDE
     Indication: IMMUNOSUPPRESSANT DRUG THERAPY
     Dosage: 150 MG, ONCE A DAY
     Route: 048
  19. CYCLOPHOSPHAMIDE. [Suspect]
     Active Substance: CYCLOPHOSPHAMIDE
     Dosage: 125 MG, UNK
     Route: 048
  20. CYCLOPHOSPHAMIDE. [Suspect]
     Active Substance: CYCLOPHOSPHAMIDE
  21. CYCLOPHOSPHAMIDE. [Suspect]
     Active Substance: CYCLOPHOSPHAMIDE
     Route: 048
  22. ATOVAQUONE. [Concomitant]
     Active Substance: ATOVAQUONE
     Indication: ANTIFUNGAL PROPHYLAXIS
     Route: 065

REACTIONS (20)
  - Febrile neutropenia [Fatal]
  - Septic shock [Fatal]
  - Blood urea increased [Unknown]
  - Hyperkalaemia [Unknown]
  - Glomerulonephritis rapidly progressive [Unknown]
  - Glomerular filtration rate decreased [Unknown]
  - Dyspnoea [Unknown]
  - Urine protein/creatinine ratio increased [Unknown]
  - Blood creatinine increased [Unknown]
  - Haematuria [Unknown]
  - Acute kidney injury [Unknown]
  - Urine output decreased [Unknown]
  - Hypoxia [Unknown]
  - Blister [Unknown]
  - Rash [Unknown]
  - Pulmonary oedema [Unknown]
  - Weight increased [Unknown]
  - Oedema [Unknown]
  - Stevens-Johnson syndrome [Unknown]
  - Glomerulosclerosis [Unknown]
